FAERS Safety Report 9610415 (Version 4)
Quarter: 2014Q1

REPORT INFORMATION
  Report Type: Spontaneous
  Country: JP (occurrence: JP)
  Receive Date: 20131009
  Receipt Date: 20140107
  Transmission Date: 20141002
  Serious: Yes (Hospitalization)
  Sender: FDA-Public Use
  Company Number: JP-PFIZER INC-2013283375

PATIENT
  Age: 56 Year
  Sex: Female
  Weight: 103 kg

DRUGS (5)
  1. CELECOX [Suspect]
     Indication: RHEUMATOID ARTHRITIS
     Dosage: 200 MG, DAILY
     Route: 048
  2. CIMZIA [Suspect]
     Indication: RHEUMATOID ARTHRITIS
     Dosage: 400 MG, ONCE EVERY 2 WEEKS
     Route: 058
     Dates: start: 20130604, end: 20130702
  3. CIMZIA [Suspect]
     Dosage: 400 MG, MONTHLY
     Route: 058
     Dates: start: 20130730
  4. RHEUMATREX [Concomitant]
     Indication: RHEUMATOID ARTHRITIS
     Dosage: UNK
  5. AZULFIDINE EN [Concomitant]
     Indication: RHEUMATOID ARTHRITIS
     Dosage: UNK
     Dates: end: 20130827

REACTIONS (1)
  - Urinary tract infection [Recovering/Resolving]
